FAERS Safety Report 7077466-4 (Version None)
Quarter: 2010Q4

REPORT INFORMATION
  Report Type: 
  Country: None (occurrence: None)
  Receive Date: 20101101
  Receipt Date: 20101026
  Transmission Date: 20110411
  Serious: Yes (Other)
  Sender: FDA-Public Use
  Company Number: GB-BRISTOL-MYERS SQUIBB COMPANY-15353626

PATIENT
  Age: 50 Year
  Sex: Male

DRUGS (1)
  1. ADCORTYL TAB [Suspect]

REACTIONS (3)
  - BRADYCARDIA [None]
  - CHEST PAIN [None]
  - LOSS OF CONSCIOUSNESS [None]
